FAERS Safety Report 5484330-0 (Version None)
Quarter: 2007Q4

REPORT INFORMATION
  Report Type: 
  Country: None (occurrence: None)
  Receive Date: 20071012
  Receipt Date: 20070926
  Transmission Date: 20080405
  Serious: No
  Sender: FDA-Public Use
  Company Number: US-BOEHRINGER INGELHEIM PHARMACEUTICALS, INC.-2007-BP-21788BP

PATIENT
  Sex: Male
  Weight: 93 kg

DRUGS (2)
  1. MIRAPEX [Suspect]
     Indication: RESTLESSNESS
     Route: 048
     Dates: start: 20070901
  2. LYRICA [Suspect]
     Indication: NEUROPATHY PERIPHERAL
     Dates: start: 20070901, end: 20070915

REACTIONS (2)
  - DRUG INEFFECTIVE [None]
  - WEIGHT INCREASED [None]
